FAERS Safety Report 7307046-4 (Version None)
Quarter: 2011Q1

REPORT INFORMATION
  Report Type: 
  Country: None (occurrence: None)
  Receive Date: 20110223
  Receipt Date: 20110209
  Transmission Date: 20110831
  Serious: No
  Sender: FDA-Public Use
  Company Number: US-BIOGENIDEC-2011BI005900

PATIENT
  Sex: Female

DRUGS (8)
  1. MOTRIN [Concomitant]
     Route: 048
  2. BENADRYL [Concomitant]
     Route: 048
  3. TYLENOL [Concomitant]
     Indication: HYPERSENSITIVITY
     Route: 048
  4. BENADRYL [Concomitant]
     Route: 042
  5. TYSABRI [Suspect]
     Indication: MULTIPLE SCLEROSIS
     Route: 042
     Dates: start: 20100302
  6. HYDROCORTISONE [Concomitant]
     Indication: HYPERSENSITIVITY
     Route: 042
  7. BENADRYL [Concomitant]
     Indication: HYPERSENSITIVITY
     Route: 042
  8. BENADRYL [Concomitant]
     Route: 048

REACTIONS (2)
  - OROPHARYNGEAL PAIN [None]
  - BACK PAIN [None]
